FAERS Safety Report 9064186 (Version 1)
Quarter: 2013Q1

REPORT INFORMATION
  Report Type: Report from Study
  Country: US (occurrence: US)
  Receive Date: 20130130
  Receipt Date: 20130130
  Transmission Date: 20140127
  Serious: No
  Sender: FDA-Public Use
  Company Number: US-ABBOTT-12P-163-0949847-00

PATIENT
  Age: 34 Year
  Sex: Female

DRUGS (2)
  1. HUMIRA 40 MG/0.8 ML PEN [Suspect]
     Indication: CROHN^S DISEASE
     Route: 058
     Dates: start: 20120518
  2. MONONESSA [Concomitant]
     Indication: CONTRACEPTION

REACTIONS (6)
  - Panic reaction [Not Recovered/Not Resolved]
  - Injection site pain [Not Recovered/Not Resolved]
  - Injection site pain [Unknown]
  - Feeling abnormal [Not Recovered/Not Resolved]
  - Device malfunction [Not Recovered/Not Resolved]
  - Phobia [Not Recovered/Not Resolved]
